FAERS Safety Report 19662149 (Version 1)
Quarter: 2021Q3

REPORT INFORMATION
  Report Type: Report from Study
  Country: HK (occurrence: HK)
  Receive Date: 20210805
  Receipt Date: 20210805
  Transmission Date: 20211014
  Serious: Yes (Other)
  Sender: FDA-Public Use
  Company Number: HK-TEVA-2021-HK-1938200

PATIENT
  Age: 25 Year
  Sex: Female

DRUGS (3)
  1. HYDROCHLOROTHIAZIDE. [Suspect]
     Active Substance: HYDROCHLOROTHIAZIDE
     Indication: WEIGHT DECREASED
     Route: 065
  2. FLUOXETINE [Suspect]
     Active Substance: FLUOXETINE HYDROCHLORIDE
     Indication: WEIGHT DECREASED
     Route: 065
  3. BISACODYL. [Suspect]
     Active Substance: BISACODYL
     Indication: WEIGHT DECREASED
     Route: 065

REACTIONS (4)
  - Toxicity to various agents [Unknown]
  - Major depression [Unknown]
  - Thyroid function test abnormal [Unknown]
  - Intentional product misuse [Unknown]
